FAERS Safety Report 6127272-X (Version None)
Quarter: 2009Q1

REPORT INFORMATION
  Report Type: 
  Country: None (occurrence: None)
  Receive Date: 20090319
  Receipt Date: 20090305
  Transmission Date: 20090719
  Serious: Yes (Hospitalization)
  Sender: FDA-Public Use
  Company Number: 02100-JPN-07-0402

PATIENT
  Age: 78 Year
  Sex: Female

DRUGS (10)
  1. CLOPIDOGREL [Suspect]
     Indication: CEREBRAL INFARCTION
     Dosage: 75 MG, QD ORAL; 75 MG, DAILY DOSE; ORAL
     Route: 048
     Dates: start: 20061102, end: 20061124
  2. CLOPIDOGREL [Suspect]
     Indication: CEREBRAL INFARCTION
     Dosage: 75 MG, QD ORAL; 75 MG, DAILY DOSE; ORAL
     Route: 048
     Dates: start: 20061126, end: 20070529
  3. ASPIRIN [Concomitant]
  4. ATORVASTATIN CALCIUM (ATORVASTATIN CALCIUM) UNKNOWN [Concomitant]
  5. CILNIDIPINE (CILNIDIPINE) UNKNOWN [Concomitant]
  6. CILOSTAZOL [Concomitant]
  7. HYDROCHLOROTHIAZIDE/IRBESARTAN (HYDROCHLOROTHIAZIDE/IRBESARTAN) UNKNOW [Concomitant]
  8. ISONIAZID [Concomitant]
  9. RIFAMPICIN [Concomitant]
  10. PYRIDOXINE HYDROCHLORIDE (PYRIDOXINE HYDROCHLORIDE) UNKNOWN [Concomitant]

REACTIONS (1)
  - HERPES ZOSTER [None]
